FAERS Safety Report 10141660 (Version 1)
Quarter: 2014Q2

REPORT INFORMATION
  Report Type: Report from Study
  Country: US (occurrence: US)
  Receive Date: 20140429
  Receipt Date: 20140429
  Transmission Date: 20141212
  Serious: Yes (Hospitalization, Other)
  Sender: FDA-Public Use
  Company Number: US-ASTRAZENECA-2014SE27400

PATIENT
  Age: 16659 Day
  Sex: Female

DRUGS (9)
  1. TICAGRELOR [Suspect]
     Indication: ISCHAEMIA
     Route: 048
     Dates: start: 20140410, end: 20140410
  2. TICAGRELOR [Suspect]
     Indication: ISCHAEMIA
     Route: 048
     Dates: start: 20140411, end: 20140419
  3. EFFEXOR XR [Concomitant]
  4. CLONAZEPAM [Concomitant]
  5. SENOKOT [Concomitant]
     Dates: start: 20140410, end: 20140412
  6. LISINOPRIL [Concomitant]
     Dates: start: 20140410
  7. DULCOLAX [Concomitant]
     Dates: start: 20140410, end: 20140412
  8. ATORVASTATIN [Concomitant]
     Dates: start: 20140410
  9. ASPIRIN [Concomitant]
     Route: 048
     Dates: start: 20140410, end: 20140410

REACTIONS (1)
  - Transient ischaemic attack [Recovered/Resolved]
